FAERS Safety Report 4457523-9 (Version None)
Quarter: 2004Q3

REPORT INFORMATION
  Report Type: 
  Country: None (occurrence: None)
  Receive Date: 20040922
  Receipt Date: 20040917
  Transmission Date: 20050211
  Serious: Yes (Hospitalization)
  Sender: FDA-Public Use
  Company Number: MK200409-0135-1

PATIENT
  Age: 37 Year
  Sex: Female

DRUGS (1)
  1. APAP/BUTAL/CAFFEINE TABS 325/50/40 (FIORICET) [Suspect]
     Indication: MIGRAINE
     Dosage: 15-20 TABLETS, DAILY

REACTIONS (21)
  - AGITATION [None]
  - CONTUSION [None]
  - DELIRIUM [None]
  - DISORIENTATION [None]
  - DRUG SCREEN POSITIVE [None]
  - EXCORIATION [None]
  - EXTRADURAL HAEMATOMA [None]
  - GRAND MAL CONVULSION [None]
  - HALLUCINATION, VISUAL [None]
  - HYPERHIDROSIS [None]
  - HYPERKINESIA [None]
  - HYPERREFLEXIA [None]
  - INCOHERENT [None]
  - INSOMNIA [None]
  - PRESSURE OF SPEECH [None]
  - PSYCHOMOTOR AGITATION [None]
  - PYREXIA [None]
  - SELF-MEDICATION [None]
  - SKULL FRACTURED BASE [None]
  - TACHYCARDIA [None]
  - TONGUE INJURY [None]
